FAERS Safety Report 26046405 (Version 1)
Quarter: 2025Q4

REPORT INFORMATION
  Report Type: Spontaneous
  Country: US (occurrence: None)
  Receive Date: 20251113
  Receipt Date: 20251113
  Transmission Date: 20260118
  Serious: No
  Sender: FDA-CTU
  Company Number: None

PATIENT
  Age: 44 Year
  Sex: Female
  Weight: 62.1 kg

DRUGS (5)
  1. FLUOXETINE [Suspect]
     Active Substance: FLUOXETINE HYDROCHLORIDE
     Indication: Raynaud^s phenomenon
     Dosage: OTHER QUANTITY : 1 CAPSULE(S);?
     Route: 048
     Dates: start: 20250319, end: 20250413
  2. CONCERTA [Concomitant]
     Active Substance: METHYLPHENIDATE HYDROCHLORIDE
  3. VIAGRA [Concomitant]
     Active Substance: SILDENAFIL CITRATE
  4. CLARITIN [Concomitant]
     Active Substance: LORATADINE
  5. One a Day women^s vitamin [Concomitant]

REACTIONS (8)
  - Off label use [None]
  - Insomnia [None]
  - Feeling of despair [None]
  - Therapy interrupted [None]
  - Initial insomnia [None]
  - Middle insomnia [None]
  - Raynaud^s phenomenon [None]
  - Condition aggravated [None]

NARRATIVE: CASE EVENT DATE: 20250319
